FAERS Safety Report 16740912 (Version 4)
Quarter: 2020Q1

REPORT INFORMATION
  Report Type: Spontaneous
  Country: JP (occurrence: JP)
  Receive Date: 20190826
  Receipt Date: 20200317
  Transmission Date: 20200409
  Serious: Yes (Hospitalization, Other)
  Sender: FDA-Public Use
  Company Number: JP-PFIZER INC-2019364785

PATIENT
  Age: 43 Year
  Sex: Female
  Weight: 41 kg

DRUGS (6)
  1. CELECOX [Suspect]
     Active Substance: CELECOXIB
     Indication: TENDONITIS
     Dosage: 100 MG, 2X/DAY (EVERY 12 HOURS)
     Route: 048
     Dates: start: 201809, end: 201810
  2. LOXONIN [Suspect]
     Active Substance: LOXOPROFEN SODIUM
     Indication: TENDONITIS
     Dosage: 60 MG, 3X/DAY (EVERY 8 HOURS)
     Route: 048
     Dates: start: 201802, end: 201809
  3. RANITIDINE. [Concomitant]
     Active Substance: RANITIDINE
     Indication: TENDONITIS
     Dosage: 50 MG, EVERY 8 HOURS
     Route: 048
     Dates: start: 200902
  4. HYPEN [ETODOLAC] [Suspect]
     Active Substance: ETODOLAC
     Indication: TENDONITIS
     Dosage: 100 MG, 2X/DAY (EVERY 12 HOURS)
     Route: 048
     Dates: start: 200909, end: 201503
  5. TRAMADOL HYDROCHLORIDE. [Concomitant]
     Active Substance: TRAMADOL HYDROCHLORIDE
     Indication: TENDONITIS
     Dosage: 50 MG, EVERY 12 HOURS
     Route: 048
     Dates: start: 201801
  6. DICLOFENAC NA [Suspect]
     Active Substance: DICLOFENAC SODIUM
     Indication: TENDONITIS
     Dosage: 50 MG, AS NEEDED
     Route: 054
     Dates: start: 201809, end: 20181112

REACTIONS (6)
  - Colitis ulcerative [Recovered/Resolved]
  - Pyrexia [Unknown]
  - Malaise [Unknown]
  - Off label use [Unknown]
  - Product use in unapproved indication [Unknown]
  - Drug eruption [Recovered/Resolved]

NARRATIVE: CASE EVENT DATE: 201809
